FAERS Safety Report 7423083-3 (Version None)
Quarter: 2011Q2

REPORT INFORMATION
  Report Type: 
  Country: None (occurrence: None)
  Receive Date: 20110419
  Receipt Date: 20110406
  Transmission Date: 20111010
  Serious: Yes (Other)
  Sender: FDA-Public Use
  Company Number: US-ASTRAZENECA-2011SE19971

PATIENT
  Age: 51 Year
  Sex: Female

DRUGS (2)
  1. NEXIUM [Concomitant]
     Route: 048
  2. CRESTOR [Suspect]
     Route: 048

REACTIONS (3)
  - PANCREATITIS [None]
  - GALLBLADDER DISORDER [None]
  - EATING DISORDER [None]
